FAERS Safety Report 5016715-0 (Version None)
Quarter: 2006Q2

REPORT INFORMATION
  Report Type: 
  Country: None (occurrence: None)
  Receive Date: 20060602
  Receipt Date: 20050209
  Transmission Date: 20061013
  Serious: No
  Sender: FDA-Public Use
  Company Number: US-GLAXOSMITHKLINE-A0544762A

PATIENT
  Age: 3 Year
  Sex: Female

DRUGS (2)
  1. AUGMENTIN ES-600 [Suspect]
     Indication: BRONCHITIS
     Dosage: 1TSP TWICE PER DAY
     Route: 048
     Dates: start: 20050207
  2. ZANTAC [Concomitant]

REACTIONS (1)
  - DIARRHOEA [None]
